FAERS Safety Report 23259019 (Version 2)
Quarter: 2024Q4

REPORT INFORMATION
  Report Type: Spontaneous
  Country: BR (occurrence: BR)
  Receive Date: 20231204
  Receipt Date: 20241017
  Transmission Date: 20250115
  Serious: Yes (Other)
  Sender: BAYER HEALTHCARE PHARMACEUTICALS INC.
  Company Number: BR-BAYER-2023A169315

PATIENT
  Age: 45 Year
  Sex: Female

DRUGS (5)
  1. MIRENA [Suspect]
     Active Substance: LEVONORGESTREL
     Indication: Cough
     Dosage: 20?G/DAY
     Route: 015
     Dates: start: 20230717
  2. CANDESARTAN CILEXETIL\HYDROCHLOROTHIAZIDE [Concomitant]
     Active Substance: CANDESARTAN CILEXETIL\HYDROCHLOROTHIAZIDE
     Indication: Hypertension
     Dosage: UNK
     Dates: start: 20231010
  3. CANDESARTAN [Concomitant]
     Active Substance: CANDESARTAN
     Indication: Hypertension
     Dosage: 8 MG, ONCE
     Dates: start: 20231010
  4. OMEPRAZOLE [Concomitant]
     Active Substance: OMEPRAZOLE
  5. DOMPERIDONE [Concomitant]
     Active Substance: DOMPERIDONE

REACTIONS (3)
  - Cough [Not Recovered/Not Resolved]
  - Device use issue [None]
  - Off label use of device [None]

NARRATIVE: CASE EVENT DATE: 20230725
